FAERS Safety Report 8582515 (Version 5)
Quarter: 2013Q1

REPORT INFORMATION
  Report Type: Spontaneous
  Country: US (occurrence: None)
  Receive Date: 20120501
  Receipt Date: 20130304
  Transmission Date: 20140127
  Serious: Yes (Life-Threatening, Hospitalization)
  Sender: FDA-Public Use
  Company Number: 003-073

PATIENT
  Age: 38 Year
  Sex: Male

DRUGS (1)
  1. CROFAB [Suspect]
     Dosage: 30 VIALS TOTAL
     Dates: start: 20120410, end: 20120411

REACTIONS (8)
  - PROTHROMBIN TIME PROLONGED [None]
  - INTERNATIONAL NORMALISED RATIO INCREASED [None]
  - ACTIVATED PARTIAL THROMBOPLASTIN TIME PROLONGED [None]
  - BLOOD FIBRINOGEN DECREASED [None]
  - CEREBROVASCULAR ACCIDENT [None]
  - COAGULOPATHY [None]
  - HEMIPLEGIA [None]
  - CEREBRAL HAEMORRHAGE [None]
